FAERS Safety Report 5727661-9 (Version None)
Quarter: 2008Q2

REPORT INFORMATION
  Report Type: 
  Country: None (occurrence: None)
  Receive Date: 20080505
  Receipt Date: 20080424
  Transmission Date: 20081010
  Serious: Yes (Other)
  Sender: FDA-Public Use
  Company Number: B0361175A

PATIENT
  Age: 57 Year
  Sex: Female

DRUGS (14)
  1. PAROXETINE HCL [Suspect]
     Indication: DEPRESSION
     Route: 065
     Dates: start: 19990819
  2. PHENYTOIN [Concomitant]
  3. AMITRIPTLINE HCL [Concomitant]
  4. CITALOPRAM HYDROBROMIDE [Concomitant]
  5. ORLISTAT [Concomitant]
     Dates: start: 20010701
  6. PROTHIADEN [Concomitant]
  7. PROZAC [Concomitant]
  8. ZIMOVANE [Concomitant]
  9. LUSTRAL [Concomitant]
  10. EFFEXOR [Concomitant]
  11. ESCITALOPRAM OXALATE [Concomitant]
  12. AMITRIPTLINE HCL [Concomitant]
  13. ENALAPRIL [Concomitant]
  14. ASPIRIN [Concomitant]

REACTIONS (16)
  - ABNORMAL BEHAVIOUR [None]
  - AGGRESSION [None]
  - AMNESIA [None]
  - ANXIETY [None]
  - BALANCE DISORDER [None]
  - DEPRESSED MOOD [None]
  - DIZZINESS [None]
  - DRUG WITHDRAWAL SYNDROME [None]
  - EMOTIONAL DISTRESS [None]
  - FATIGUE [None]
  - FEELING ABNORMAL [None]
  - HYPERTENSION [None]
  - LETHARGY [None]
  - NAUSEA [None]
  - NIGHTMARE [None]
  - TEARFULNESS [None]
